FAERS Safety Report 12792425 (Version 1)
Quarter: 2016Q3

REPORT INFORMATION
  Report Type: Spontaneous
  Country: US (occurrence: US)
  Receive Date: 20160927
  Receipt Date: 20160927
  Transmission Date: 20161109
  Serious: No
  Sender: FDA-Public Use
  Company Number: None

PATIENT
  Age: 65 Year
  Sex: Female
  Weight: 62.6 kg

DRUGS (6)
  1. LISINOPRIL. [Concomitant]
     Active Substance: LISINOPRIL
  2. CALCIUM [Concomitant]
     Active Substance: CALCIUM
  3. CRANBERRY PILLS [Concomitant]
  4. VITAMIN B [Concomitant]
     Active Substance: VITAMIN B
  5. FISH OIL [Concomitant]
     Active Substance: FISH OIL
  6. LEVOFLOXACIN ZYDUS [Suspect]
     Active Substance: LEVOFLOXACIN
     Indication: CYSTITIS
     Dosage: ?          QUANTITY:I DIG?:;?
     Route: 048
     Dates: start: 20160705, end: 20160710

REACTIONS (6)
  - Insomnia [None]
  - Gait disturbance [None]
  - Tendonitis [None]
  - Pain [None]
  - Tendon pain [None]
  - Dysstasia [None]

NARRATIVE: CASE EVENT DATE: 20160710
